FAERS Safety Report 7249423-6 (Version None)
Quarter: 2011Q1

REPORT INFORMATION
  Report Type: 
  Country: None (occurrence: None)
  Receive Date: 20110128
  Receipt Date: 20101217
  Transmission Date: 20110831
  Serious: Yes (Death)
  Sender: FDA-Public Use
  Company Number: US-BAYER-2010-000877

PATIENT
  Sex: Male

DRUGS (4)
  1. SYNTHROID [Concomitant]
  2. LIPITOR [Concomitant]
  3. FEXOFENADINE HCL [Concomitant]
  4. NEXAVAR [Suspect]
     Indication: HEPATIC NEOPLASM MALIGNANT
     Dosage: 400 MG, BID
     Route: 048
     Dates: start: 20100317

REACTIONS (1)
  - DEATH [None]
